FAERS Safety Report 12392837 (Version 2)
Quarter: 2016Q2

REPORT INFORMATION
  Report Type: Spontaneous
  Country: JP (occurrence: JP)
  Receive Date: 20160523
  Receipt Date: 20160614
  Transmission Date: 20160815
  Serious: Yes (Life-Threatening)
  Sender: FDA-Public Use
  Company Number: JP-BEH-2016062858

PATIENT
  Age: 88 Year
  Sex: Female
  Weight: 36.8 kg

DRUGS (16)
  1. ALBUMINAR-25 [Suspect]
     Active Substance: ALBUMIN HUMAN
     Indication: HYPOALBUMINAEMIA
     Dosage: 1 VIAL, TOT
     Route: 042
     Dates: start: 20160513, end: 20160513
  2. PROPOFOL. [Concomitant]
     Active Substance: PROPOFOL
     Indication: SEDATION
     Dosage: 5 ML, 1 HR
     Route: 042
     Dates: start: 20160507, end: 20160527
  3. SOL-MELCORT [Concomitant]
     Active Substance: METHYLPREDNISOLONE SODIUM SUCCINATE
     Dosage: 125 MG, OD
     Route: 042
     Dates: start: 20160510, end: 20160517
  4. SOL-MELCORT [Concomitant]
     Active Substance: METHYLPREDNISOLONE SODIUM SUCCINATE
     Dosage: 40 MG, OD
     Route: 042
     Dates: start: 20160518, end: 20160518
  5. SOL-MELCORT [Concomitant]
     Active Substance: METHYLPREDNISOLONE SODIUM SUCCINATE
     Dosage: 20 MG, OD
     Route: 042
     Dates: start: 20160519, end: 20160519
  6. ALBUMINAR-25 [Suspect]
     Active Substance: ALBUMIN HUMAN
     Dosage: UNK
     Route: 042
  7. LASIX [Concomitant]
     Active Substance: FUROSEMIDE
     Indication: FLUID OVERLOAD
     Dosage: 0.5 - 0.2, 1 HR
     Route: 042
     Dates: start: 20160509, end: 20160527
  8. ALBUMINAR-25 [Suspect]
     Active Substance: ALBUMIN HUMAN
     Dosage: 2 VIALS, TOT
     Route: 042
     Dates: start: 20160519, end: 20160519
  9. ALBUMINAR-25 [Suspect]
     Active Substance: ALBUMIN HUMAN
     Dosage: 2 VIALS, TOT
     Route: 042
     Dates: start: 20160520, end: 20160520
  10. ALBUMINAR-25 [Suspect]
     Active Substance: ALBUMIN HUMAN
     Dosage: 1 VIAL, TOT
     Route: 042
     Dates: start: 20160514, end: 20160514
  11. ALBUMINAR-25 [Suspect]
     Active Substance: ALBUMIN HUMAN
     Dosage: 1 VIAL, TOT
     Route: 042
     Dates: start: 20160515, end: 20160515
  12. MEROPENEM. [Concomitant]
     Active Substance: MEROPENEM
     Indication: PYELONEPHRITIS
     Dosage: 0.5 G, BID
     Route: 042
     Dates: start: 20160508, end: 20160527
  13. SOL-MELCORT [Concomitant]
     Active Substance: METHYLPREDNISOLONE SODIUM SUCCINATE
     Dosage: 250 MG, OD
     Route: 042
     Dates: start: 20160508, end: 20160509
  14. FAMOTIDINE. [Concomitant]
     Active Substance: FAMOTIDINE
     Indication: PROPHYLAXIS
     Dosage: 20 MG, BID
     Route: 042
     Dates: start: 20160507, end: 20160519
  15. RED CELLS CONCENTRATES-LEUKOCYTES REDUCED [Concomitant]
     Dosage: 280 ML, UNK
     Route: 065
     Dates: start: 20160508
  16. ALBUMINAR-25 [Suspect]
     Active Substance: ALBUMIN HUMAN
     Dosage: 2 VIALS, TOT
     Route: 042
     Dates: start: 20160521, end: 20160521

REACTIONS (1)
  - Haemolytic anaemia [Recovered/Resolved]

NARRATIVE: CASE EVENT DATE: 20160514
